FAERS Safety Report 4320010-2 (Version None)
Quarter: 2004Q1

REPORT INFORMATION
  Report Type: 
  Country: None (occurrence: None)
  Receive Date: 20040319
  Receipt Date: 20040225
  Transmission Date: 20041129
  Serious: Yes (Hospitalization)
  Sender: FDA-Public Use
  Company Number: WAES 0402USA01926

PATIENT
  Age: 30 Year
  Sex: Female
  Weight: 64 kg

DRUGS (3)
  1. AZULENE [Concomitant]
     Dates: start: 20040225
  2. BETAMETHASONE VALERATE AND GENTAMICIN SULFATE [Concomitant]
     Dates: start: 20040225
  3. ALDOMET [Suspect]
     Indication: HYPERTENSION
     Route: 048
     Dates: start: 20040212, end: 20040227

REACTIONS (10)
  - AUTOPHONY [None]
  - COMPLICATIONS OF MATERNAL EXPOSURE TO THERAPEUTIC DRUGS [None]
  - DRUG EXPOSURE DURING PREGNANCY [None]
  - EYE PAIN [None]
  - HEADACHE [None]
  - LACRIMATION INCREASED [None]
  - PHOTOPHOBIA [None]
  - PREGNANCY INDUCED HYPERTENSION [None]
  - SOMNOLENCE [None]
  - YAWNING [None]
